FAERS Safety Report 24406464 (Version 1)
Quarter: 2024Q4

REPORT INFORMATION
  Report Type: Spontaneous
  Country: US (occurrence: None)
  Receive Date: 20241005
  Receipt Date: 20241005
  Transmission Date: 20250115
  Serious: Yes (Disabling)
  Sender: Public
  Company Number: None

PATIENT
  Age: 40 Year
  Sex: Female
  Weight: 69.75 kg

DRUGS (5)
  1. MONTELUKAST [Suspect]
     Active Substance: MONTELUKAST
     Indication: Hereditary alpha tryptasaemia
     Dosage: OTHER QUANTITY : 1 TABLET(S);?FREQUENCY : AT BEDTIME;?
     Route: 048
     Dates: start: 20241002, end: 20241004
  2. ZYRTEC [Concomitant]
     Active Substance: CETIRIZINE HYDROCHLORIDE
  3. HERBALS\TURMERIC [Concomitant]
     Active Substance: HERBALS\TURMERIC
  4. ducosate sodium [Concomitant]
  5. OMEGA 3 [Concomitant]
     Active Substance: CAPSAICIN

REACTIONS (11)
  - Confusional state [None]
  - Disorientation [None]
  - Feeling abnormal [None]
  - Depressed mood [None]
  - Anxiety [None]
  - Irritability [None]
  - Fatigue [None]
  - Somnolence [None]
  - Abnormal dreams [None]
  - Loss of personal independence in daily activities [None]
  - Impaired work ability [None]

NARRATIVE: CASE EVENT DATE: 20241003
